FAERS Safety Report 10449179 (Version 2)
Quarter: 2014Q4

REPORT INFORMATION
  Report Type: Spontaneous
  Country: BR (occurrence: BR)
  Receive Date: 20140912
  Receipt Date: 20141001
  Transmission Date: 20150528
  Serious: Yes (Hospitalization)
  Sender: FDA-Public Use
  Company Number: BR-BRISTOL-MYERS SQUIBB COMPANY-21384847

PATIENT
  Age: 59 Year
  Sex: Male

DRUGS (12)
  1. DONAREN [Concomitant]
     Active Substance: TRAZODONE HYDROCHLORIDE
  2. ASA [Suspect]
     Active Substance: ASPIRIN
     Route: 048
  3. MATERNA [Concomitant]
  4. TECTA [Concomitant]
     Active Substance: PANTOPRAZOLE MAGNESIUM
  5. LORAX [Concomitant]
     Active Substance: LORAZEPAM
  6. DIAMICRON [Concomitant]
     Active Substance: GLICLAZIDE
     Indication: DIABETES MELLITUS
  7. GLIFAGE [Suspect]
     Active Substance: METFORMIN HYDROCHLORIDE
     Indication: DIABETES MELLITUS
     Dosage: LAST DOSE ON: JUL14.
     Route: 048
  8. CRESTOR [Suspect]
     Active Substance: ROSUVASTATIN CALCIUM
     Indication: BLOOD CHOLESTEROL INCREASED
     Route: 048
     Dates: start: 2004
  9. INSULIN [Concomitant]
     Active Substance: INSULIN NOS
     Indication: DIABETES MELLITUS
     Dosage: 6U1
     Route: 058
  10. TICAGRELOR [Suspect]
     Active Substance: TICAGRELOR
  11. GLIMEPIRIDE. [Concomitant]
     Active Substance: GLIMEPIRIDE
     Indication: DIABETES MELLITUS
     Route: 048
  12. JANUVIA [Concomitant]
     Active Substance: SITAGLIPTIN PHOSPHATE
     Indication: DIABETES MELLITUS

REACTIONS (1)
  - Venous occlusion [Recovered/Resolved]

NARRATIVE: CASE EVENT DATE: 200407
